FAERS Safety Report 9056791 (Version 2)
Quarter: 2013Q1

REPORT INFORMATION
  Report Type: Spontaneous
  Country: US (occurrence: US)
  Receive Date: 20130201
  Receipt Date: 20130301
  Transmission Date: 20140127
  Serious: No
  Sender: FDA-Public Use
  Company Number: US-ASTRAZENECA-2002UW07352

PATIENT
  Age: 82 Year
  Sex: Female
  Weight: 131.5 kg

DRUGS (11)
  1. ARIMIDEX [Suspect]
     Route: 048
     Dates: start: 201002
  2. NEXIUM [Suspect]
     Dosage: DAILY
     Route: 048
  3. NEXIUM [Suspect]
     Dosage: GENERIC
     Route: 048
  4. TAMOXIFEN [Suspect]
     Indication: BREAST CANCER
     Route: 048
     Dates: start: 2001
  5. SYNTHROID [Concomitant]
  6. HYDROXYCHLOROQUINE [Concomitant]
  7. FISH OIL [Concomitant]
  8. MULTI-VITAMIN [Concomitant]
  9. TRIAMETERENE [Concomitant]
  10. PREVACID [Concomitant]
  11. THREE GENERICS [Concomitant]

REACTIONS (7)
  - Weight increased [Unknown]
  - Breast enlargement [Unknown]
  - Breast tenderness [Unknown]
  - Adverse drug reaction [Unknown]
  - Blood glucose increased [Unknown]
  - Oedema peripheral [Unknown]
  - Drug ineffective [Unknown]
